FAERS Safety Report 9041250 (Version 3)
Quarter: 2014Q2

REPORT INFORMATION
  Report Type: Spontaneous
  Country: US (occurrence: US)
  Receive Date: 20130129
  Receipt Date: 20140414
  Transmission Date: 20141212
  Serious: Yes (Life-Threatening, Hospitalization)
  Sender: FDA-Public Use
  Company Number: US-BAYER-2013-011354

PATIENT
  Age: 36 Year
  Sex: Female
  Weight: 54.42 kg

DRUGS (16)
  1. YAZ [Suspect]
     Dosage: UNK
     Dates: start: 1989, end: 2005
  2. YASMIN [Suspect]
     Dosage: UNK
     Dates: start: 1989, end: 2005
  3. IBUPROFEN [Concomitant]
     Dosage: UNK
     Dates: start: 1995
  4. BENICAR [Concomitant]
     Dosage: UNK
     Dates: start: 2005
  5. POTASSIUM [POTASSIUM] [Concomitant]
     Dosage: UNK
     Dates: start: 2005, end: 2006
  6. VITAMIN C [Concomitant]
     Dosage: UNK
     Dates: start: 2005
  7. PRINIVIL [Concomitant]
  8. DEPAKOTE [Concomitant]
  9. POTASSIUM CHLORIDE [Concomitant]
  10. LASIX [Concomitant]
  11. COREG [Concomitant]
  12. ENTERIC COATED ASPIRIN [Concomitant]
  13. ZYRTEC [Concomitant]
  14. INFLUENZA VACCINE [Concomitant]
  15. XENICAL [Concomitant]
  16. HYDROCHLOROTHIAZIDE [Concomitant]

REACTIONS (11)
  - Cardiac failure congestive [None]
  - Benign intracranial hypertension [None]
  - Thrombosis [None]
  - Pain [None]
  - Anxiety [None]
  - Anhedonia [None]
  - Fear of disease [None]
  - Oedema [None]
  - Injury [None]
  - Depression [None]
  - Emotional distress [None]
